FAERS Safety Report 7747776-3 (Version None)
Quarter: 2011Q3

REPORT INFORMATION
  Report Type: 
  Country: None (occurrence: None)
  Receive Date: 20110913
  Receipt Date: 20110908
  Transmission Date: 20111222
  Serious: Yes (Hospitalization)
  Sender: FDA-Public Use
  Company Number: FR-ROCHE-801648

PATIENT
  Sex: Female

DRUGS (8)
  1. CLONAZEPAM [Suspect]
     Dosage: PROGRESSIVELY DECREASED
     Route: 065
  2. CLONAZEPAM [Suspect]
     Route: 065
     Dates: end: 20110806
  3. APROVEL [Concomitant]
     Route: 065
  4. AMITRIPTYLINE HCL [Concomitant]
     Route: 065
  5. INDAPAMIDE [Concomitant]
     Route: 048
  6. CLONAZEPAM [Suspect]
     Route: 065
     Dates: start: 20110801
  7. TEGRETOL [Suspect]
     Route: 048
     Dates: start: 20110802, end: 20110809
  8. IMOVANE [Concomitant]
     Route: 065

REACTIONS (3)
  - INAPPROPRIATE ANTIDIURETIC HORMONE SECRETION [None]
  - HYPONATRAEMIA [None]
  - BRADYCARDIA [None]
